FAERS Safety Report 6862328-5 (Version None)
Quarter: 2010Q3

REPORT INFORMATION
  Report Type: 
  Country: None (occurrence: None)
  Receive Date: 20100721
  Receipt Date: 20100712
  Transmission Date: 20110219
  Serious: Yes (Hospitalization, Other)
  Sender: FDA-Public Use
  Company Number: PHHY2008CA25892

PATIENT
  Sex: Female

DRUGS (5)
  1. SANDOSTATIN LAR [Suspect]
     Indication: ACROMEGALY
     Dosage: 30 MG, EVERY 4 WEEKS
     Route: 030
     Dates: start: 20061201, end: 20100101
  2. CELEXA [Concomitant]
  3. TRANDOLAPRIL [Concomitant]
  4. ROSUVASTATIN [Concomitant]
  5. CANDESARTAN [Concomitant]

REACTIONS (32)
  - ABDOMINAL PAIN [None]
  - APNOEA [None]
  - ARTHRALGIA [None]
  - BACK PAIN [None]
  - BONE SWELLING [None]
  - BREAST HAEMORRHAGE [None]
  - BREAST OPERATION [None]
  - CHEST PAIN [None]
  - COUGH [None]
  - DIZZINESS [None]
  - DRUG INEFFECTIVE [None]
  - DRY THROAT [None]
  - FATIGUE [None]
  - FEELING HOT [None]
  - FLUSHING [None]
  - GAIT DISTURBANCE [None]
  - GLUCOSE TOLERANCE IMPAIRED [None]
  - HEADACHE [None]
  - HYPERHIDROSIS [None]
  - HYPERTENSION [None]
  - INJECTION SITE PAIN [None]
  - LYMPHADENECTOMY [None]
  - MALAISE [None]
  - MUSCULOSKELETAL PAIN [None]
  - NAUSEA [None]
  - PAIN IN EXTREMITY [None]
  - PALLOR [None]
  - PHOTOPHOBIA [None]
  - SOMNOLENCE [None]
  - THROAT TIGHTNESS [None]
  - TOOTHACHE [None]
  - VERTIGO [None]
